FAERS Safety Report 4875995-2 (Version None)
Quarter: 2005Q4

REPORT INFORMATION
  Report Type: 
  Country: None (occurrence: None)
  Receive Date: 20051207
  Receipt Date: 20050225
  Transmission Date: 20060501
  Serious: Yes (Other)
  Sender: FDA-Public Use
  Company Number: 2005-BP-03452BP

PATIENT
  Age: 59 Year
  Sex: Male
  Weight: 71.2 kg

DRUGS (1)
  1. PERSANTINE [Suspect]
     Indication: CARDIAC STRESS TEST
     Dosage: 40.2 MG (SEE TEXT, 10MG/2ML)
     Dates: start: 20041215

REACTIONS (2)
  - HEADACHE [None]
  - NAUSEA [None]
